FAERS Safety Report 25440322 (Version 1)
Quarter: 2025Q2

REPORT INFORMATION
  Report Type: Spontaneous
  Country: US (occurrence: US)
  Receive Date: 20250616
  Receipt Date: 20250616
  Transmission Date: 20250716
  Serious: Yes (Other)
  Sender: GILEAD
  Company Number: US-GILEAD-2025-0716767

PATIENT
  Age: 49 Year
  Sex: Female

DRUGS (3)
  1. STRIBILD [Suspect]
     Active Substance: COBICISTAT\ELVITEGRAVIR\EMTRICITABINE\TENOFOVIR DISOPROXIL FUMARATE
     Indication: HIV infection
     Route: 065
  2. DOLUTEGRAVIR SODIUM;EMTRICITABINE;TENOFOVIR ALAFENAMIDE [Concomitant]
  3. ATAZANAVIR [Concomitant]
     Active Substance: ATAZANAVIR

REACTIONS (2)
  - Isosporiasis [Not Recovered/Not Resolved]
  - Immune reconstitution inflammatory syndrome [Unknown]
